FAERS Safety Report 9305251 (Version 1)
Quarter: 2013Q2

REPORT INFORMATION
  Report Type: Spontaneous
  Country: US (occurrence: US)
  Receive Date: 20130523
  Receipt Date: 20130523
  Transmission Date: 20140414
  Serious: Yes (Hospitalization, Other)
  Sender: FDA-Public Use
  Company Number: US-PURDUE-USA-2013-0102503

PATIENT
  Sex: Male

DRUGS (5)
  1. OXYCONTIN (NDA 22-272) [Suspect]
     Indication: PAIN
     Dosage: 80 MG, TID
     Route: 048
     Dates: start: 2006
  2. OXYCODONE HYDROCHLORIDE (SIMILAR TO NDA 22-272) [Concomitant]
     Indication: BREAKTHROUGH PAIN
     Dosage: 10 MG, PRN
     Route: 048
  3. MAXALT                             /01406501/ [Concomitant]
     Indication: MIGRAINE
     Dosage: 10 MG, PRN
     Route: 048
  4. MIGRANOL                           /00367001/ [Concomitant]
     Indication: MIGRAINE
     Dosage: 4 ML, PRN, 4MG/4ML
     Route: 045
  5. LYRICA [Concomitant]
     Indication: PAIN
     Dosage: UNKNOWN

REACTIONS (5)
  - Convulsion [Recovered/Resolved]
  - Contusion [Unknown]
  - Haemorrhage [Unknown]
  - Migraine [Not Recovered/Not Resolved]
  - Drug ineffective [Not Recovered/Not Resolved]
